FAERS Safety Report 8396558-0 (Version None)
Quarter: 2012Q1

REPORT INFORMATION
  Report Type: 
  Country: None (occurrence: None)
  Receive Date: 20120323
  Receipt Date: 20110414
  Transmission Date: 20120608
  Serious: Yes (Life-Threatening, Other)
  Sender: FDA-Public Use
  Company Number: 163-21880-11042094

PATIENT
  Age: 60 Year
  Sex: Male

DRUGS (1)
  1. REVLIMID [Suspect]
     Dosage: 10 MG, DAILY M-W-F ONE WEEK ON/ONE WEEK OFF, PO
     Route: 048
     Dates: start: 20090212, end: 20110328

REACTIONS (1)
  - MULTIPLE MYELOMA [None]
